FAERS Safety Report 18715911 (Version 1)
Quarter: 2021Q1

REPORT INFORMATION
  Report Type: Spontaneous
  Country: US (occurrence: US)
  Receive Date: 20210107
  Receipt Date: 20210107
  Transmission Date: 20210419
  Serious: Yes (Other)
  Sender: FDA-Public Use
  Company Number: None

PATIENT
  Age: 77 Year
  Sex: Male
  Weight: 125.19 kg

DRUGS (15)
  1. ASTPRVASTATIN [Concomitant]
  2. BYDUREON [Suspect]
     Active Substance: EXENATIDE
     Indication: WEIGHT ABNORMAL
     Dosage: ?          QUANTITY:1 DF DOSAGE FORM;?
     Route: 058
     Dates: start: 20201026, end: 20201109
  3. TRESHIBA [Concomitant]
  4. SMZ=TMP BACTRIM [Concomitant]
  5. CENTRUM SILVER [Concomitant]
     Active Substance: MINERALS\VITAMINS
  6. LOSARTAN. [Concomitant]
     Active Substance: LOSARTAN
  7. MINERAL OIL. [Concomitant]
     Active Substance: MINERAL OIL
  8. CALCIUM [Concomitant]
     Active Substance: CALCIUM
  9. FINASTERIDE. [Concomitant]
     Active Substance: FINASTERIDE
  10. ISOSOBIDE MONONITRATE [Concomitant]
  11. STOOL SOFTENER (DOCUSATE) [Concomitant]
     Active Substance: DOCUSATE
  12. TAMSULOSIN [Concomitant]
     Active Substance: TAMSULOSIN
  13. OMEGA 3 [Concomitant]
     Active Substance: OMEGA-3 FATTY ACIDS
  14. ASPRIN [Concomitant]
     Active Substance: ASPIRIN
  15. AMLODIPINE [Concomitant]
     Active Substance: AMLODIPINE BESYLATE

REACTIONS (4)
  - Injection site haemorrhage [None]
  - Hunger [None]
  - Injection site swelling [None]
  - Increased appetite [None]

NARRATIVE: CASE EVENT DATE: 20201026
